FAERS Safety Report 19461471 (Version 1)
Quarter: 2021Q2

REPORT INFORMATION
  Report Type: Other
  Country: TH (occurrence: TH)
  Receive Date: 20210625
  Receipt Date: 20210625
  Transmission Date: 20210717
  Serious: Yes (Other)
  Sender: FDA-Public Use
  Company Number: TH-ROCHE-2787728

PATIENT
  Age: 20 Month
  Sex: Female
  Weight: 10.5 kg

DRUGS (2)
  1. RISDIPLAM. [Suspect]
     Active Substance: RISDIPLAM
     Indication: SPINAL MUSCULAR ATROPHY
     Dosage: GASTRIC TUBE FEEDING
     Route: 048
     Dates: start: 20210301
  2. PREVACID [Concomitant]
     Active Substance: LANSOPRAZOLE
     Dates: start: 20210222, end: 20210316

REACTIONS (3)
  - Sinus tachycardia [Unknown]
  - Autonomic neuropathy [Unknown]
  - Secretion discharge [Unknown]
